FAERS Safety Report 24677531 (Version 2)
Quarter: 2024Q4

REPORT INFORMATION
  Report Type: Spontaneous
  Country: US (occurrence: US)
  Receive Date: 20241129
  Receipt Date: 20241230
  Transmission Date: 20250115
  Serious: Yes (Other)
  Sender: CSL BEHRING
  Company Number: US-BEH-2024186396

PATIENT
  Sex: Female

DRUGS (2)
  1. HIZENTRA [Suspect]
     Active Substance: HUMAN IMMUNOGLOBULIN G
     Indication: Hypogammaglobulinaemia
     Dosage: 10 G
  2. HIZENTRA [Suspect]
     Active Substance: HUMAN IMMUNOGLOBULIN G
     Dosage: 15 G

REACTIONS (14)
  - Neuropathy peripheral [Unknown]
  - Rheumatoid arthritis [Unknown]
  - Temperature intolerance [Unknown]
  - Influenza like illness [Unknown]
  - Nasopharyngitis [Unknown]
  - Fatigue [Unknown]
  - Pain [Unknown]
  - Goitre [Unknown]
  - Thyroid mass [Unknown]
  - Dysphagia [Unknown]
  - Wheezing [Unknown]
  - Blood immunoglobulin G increased [Unknown]
  - Injection site scar [Unknown]
  - Therapy change [Unknown]
